FAERS Safety Report 13273393 (Version 11)
Quarter: 2020Q2

REPORT INFORMATION
  Report Type: Report from Study
  Country: JP (occurrence: JP)
  Receive Date: 20170227
  Receipt Date: 20200507
  Transmission Date: 20200713
  Serious: Yes (Hospitalization, Disabling, Other)
  Sender: FDA-Public Use
  Company Number: PHJP2017JP006284

PATIENT
  Age: 7 Month
  Sex: Male
  Weight: 14 kg

DRUGS (65)
  1. ILARIS [Suspect]
     Active Substance: CANAKINUMAB
     Dosage: 67 UNK, UNK
     Route: 058
     Dates: start: 20180703
  2. GLYCEROL [Suspect]
     Active Substance: GLYCERIN
     Indication: CONSTIPATION
     Dosage: 15 ML, UNK
     Route: 054
     Dates: start: 20170822
  3. PHENOBAL [Concomitant]
     Active Substance: PHENOBARBITAL
     Dosage: 45 MG, UNK
     Route: 048
     Dates: start: 20180731, end: 20180731
  4. SYNAGIS [Concomitant]
     Active Substance: PALIVIZUMAB
     Dosage: 130 MG, UNK
     Route: 065
     Dates: start: 20180605, end: 20180605
  5. ILARIS [Suspect]
     Active Substance: CANAKINUMAB
     Indication: CRYOPYRIN ASSOCIATED PERIODIC SYNDROME
     Dosage: 16.5 MG, UNK
     Route: 058
     Dates: start: 20161018, end: 20161018
  6. PHENOBAL [Concomitant]
     Active Substance: PHENOBARBITAL
     Dosage: UNK
     Route: 048
  7. INCREMIN [Concomitant]
     Indication: CHRONIC INFANTILE NEUROLOGICAL CUTANEOUS AND ARTICULAR SYNDROME
     Dosage: 6 ML, UNK
     Route: 048
     Dates: start: 20170110, end: 20170918
  8. CEFOTAXIME [Concomitant]
     Active Substance: CEFOTAXIME SODIUM
     Indication: PROPHYLAXIS
     Dosage: 900 MG, UNK
     Route: 065
     Dates: start: 20170222, end: 20170224
  9. E KEPPRA [Concomitant]
     Active Substance: LEVETIRACETAM
     Indication: CHRONIC INFANTILE NEUROLOGICAL CUTANEOUS AND ARTICULAR SYNDROME
     Dosage: 50 MG, UNK
     Route: 048
     Dates: start: 20180313, end: 20180319
  10. MIYA-BM [Concomitant]
     Active Substance: CLOSTRIDIUM BUTYRICUM SPORES STRAIN M-55
     Indication: PYREXIA
     Dosage: 0.8 G, UNK
     Route: 048
     Dates: start: 20180703, end: 20180709
  11. MIYA-BM [Concomitant]
     Active Substance: CLOSTRIDIUM BUTYRICUM SPORES STRAIN M-55
     Indication: C-REACTIVE PROTEIN INCREASED
     Dosage: 0.8 G
     Route: 048
     Dates: start: 20180813, end: 20180814
  12. ILARIS [Suspect]
     Active Substance: CANAKINUMAB
     Indication: CHRONIC INFANTILE NEUROLOGICAL CUTANEOUS AND ARTICULAR SYNDROME
     Dosage: 15 MG, UNK
     Route: 058
     Dates: start: 20160823, end: 20160823
  13. ILARIS [Suspect]
     Active Substance: CANAKINUMAB
     Dosage: 16.5 MG, UNK
     Route: 058
     Dates: start: 20170207
  14. MEIACT [Suspect]
     Active Substance: CEFDITOREN PIVOXIL
     Indication: C-REACTIVE PROTEIN INCREASED
     Dosage: 0.8 G, UNK
     Route: 048
     Dates: start: 20180703, end: 20180709
  15. CEFDITOREN PIVOXIL. [Suspect]
     Active Substance: CEFDITOREN PIVOXIL
     Dosage: 0.9 G
     Route: 048
     Dates: start: 20190228, end: 20190306
  16. PHENOBAL [Concomitant]
     Active Substance: PHENOBARBITAL
     Indication: CHRONIC INFANTILE NEUROLOGICAL CUTANEOUS AND ARTICULAR SYNDROME
     Dosage: 40 MG, UNK
     Route: 048
     Dates: start: 20160424, end: 20170530
  17. PHENOBAL [Concomitant]
     Active Substance: PHENOBARBITAL
     Dosage: 50 MG, UNK
     Route: 048
     Dates: start: 20180703, end: 20180730
  18. ILARIS [Suspect]
     Active Substance: CANAKINUMAB
     Dosage: 63 MG, UNK
     Route: 058
     Dates: start: 20180109
  19. CEFDITOREN PIVOXIL. [Suspect]
     Active Substance: CEFDITOREN PIVOXIL
     Indication: PYREXIA
     Dosage: 0.8 G, UNK
     Route: 048
     Dates: start: 20180620, end: 20180624
  20. INFLUENZA VACCINE [Concomitant]
     Active Substance: INFLUENZA VIRUS VACCINE
     Indication: PROPHYLAXIS
     Dosage: 0.25 ML, UNK
     Route: 065
     Dates: start: 20161115, end: 20161115
  21. SYNAGIS [Concomitant]
     Active Substance: PALIVIZUMAB
     Dosage: 130 MG, UNK
     Route: 065
     Dates: start: 20180508, end: 20180508
  22. CEFOTAXIME [Concomitant]
     Active Substance: CEFOTAXIME SODIUM
     Dosage: 300 MG, TID
     Route: 042
     Dates: start: 20180823, end: 20180825
  23. E KEPPRA [Concomitant]
     Active Substance: LEVETIRACETAM
     Dosage: 150 MG, UNK
     Route: 048
     Dates: start: 20180417, end: 20180730
  24. MIYA-BM [Concomitant]
     Active Substance: CLOSTRIDIUM BUTYRICUM SPORES STRAIN M-55
     Indication: DECREASED APPETITE
     Dosage: 0.8 G, UNK
     Route: 048
     Dates: start: 20180605, end: 20180609
  25. ILARIS [Suspect]
     Active Substance: CANAKINUMAB
     Dosage: UNK
     Route: 058
  26. MEIACT [Suspect]
     Active Substance: CEFDITOREN PIVOXIL
     Indication: PNEUMONIA
     Dosage: 800 MG
     Route: 048
     Dates: start: 20180813, end: 20180814
  27. CEFDITOREN PIVOXIL. [Suspect]
     Active Substance: CEFDITOREN PIVOXIL
     Indication: PNEUMONIA ASPIRATION
     Dosage: 0.8 G, UNK
     Route: 048
     Dates: start: 20180709, end: 20180711
  28. INCREMIN [Concomitant]
     Indication: ANAEMIA
  29. BAKTAR [Concomitant]
     Active Substance: SULFAMETHOXAZOLE\TRIMETHOPRIM
     Dosage: 0.2 G, UNK
     Route: 048
     Dates: start: 20180703
  30. CEFOTAXIME [Concomitant]
     Active Substance: CEFOTAXIME SODIUM
     Dosage: 400 MG, TID
     Route: 042
     Dates: start: 20190306, end: 20190311
  31. MIYA-BM [Concomitant]
     Active Substance: CLOSTRIDIUM BUTYRICUM SPORES STRAIN M-55
     Indication: GASTROENTERITIS
     Dosage: 1 MG
     Route: 048
     Dates: start: 20181020, end: 20181023
  32. ILARIS [Suspect]
     Active Substance: CANAKINUMAB
     Dosage: 63 MG, UNK
     Route: 058
     Dates: start: 20171114
  33. SYNAGIS [Concomitant]
     Active Substance: PALIVIZUMAB
     Indication: PROPHYLAXIS
     Dosage: 120 MG, 4W
     Route: 065
     Dates: start: 20161213, end: 20180403
  34. E KEPPRA [Concomitant]
     Active Substance: LEVETIRACETAM
     Dosage: 200 MG, UNK
     Route: 048
     Dates: start: 20180731
  35. MIYA-BM [Concomitant]
     Active Substance: CLOSTRIDIUM BUTYRICUM SPORES STRAIN M-55
     Dosage: 0.9 MG
     Route: 048
     Dates: start: 20181222, end: 20181228
  36. ENSURE [Concomitant]
     Active Substance: AMINO ACIDS\DEXTROSE\ELECTROLYTES NOS\SOYBEAN OIL\VITAMINS
     Indication: CHRONIC INFANTILE NEUROLOGICAL CUTANEOUS AND ARTICULAR SYNDROME
     Dosage: 1 DF, UNK
     Route: 048
     Dates: start: 20180508, end: 20180826
  37. ILARIS [Suspect]
     Active Substance: CANAKINUMAB
     Dosage: 63 MG, UNK
     Route: 058
     Dates: start: 20170725
  38. ILARIS [Suspect]
     Active Substance: CANAKINUMAB
     Dosage: 63 UNK, UNK
     Route: 058
     Dates: start: 20180306
  39. ILARIS [Suspect]
     Active Substance: CANAKINUMAB
     Dosage: 67 MG, UNK
     Route: 058
     Dates: start: 20180508
  40. INFLUENZA VACCINE [Concomitant]
     Active Substance: INFLUENZA VIRUS VACCINE
     Dosage: 0.25 ML, UNK
     Route: 065
     Dates: start: 20170110, end: 20170110
  41. HIRUDOID [Concomitant]
     Active Substance: GLYCOSAMINOGLYCANS
     Indication: PRODUCT USED FOR UNKNOWN INDICATION
     Dosage: UNK
     Route: 061
     Dates: start: 20180109
  42. CEFOTAXIME [Concomitant]
     Active Substance: CEFOTAXIME SODIUM
     Indication: PNEUMONIA
     Dosage: 300 MG, UNK
     Route: 065
     Dates: start: 20180621, end: 20180621
  43. CEFOTAXIME [Concomitant]
     Active Substance: CEFOTAXIME SODIUM
     Indication: PNEUMONIA ASPIRATION
     Dosage: 1200 MG, UNK
     Route: 065
     Dates: start: 20180704, end: 20180709
  44. CEFOTAXIME [Concomitant]
     Active Substance: CEFOTAXIME SODIUM
     Dosage: 300 MG, TID
     Route: 042
     Dates: start: 20180814, end: 20180817
  45. MIYA-BM [Concomitant]
     Active Substance: CLOSTRIDIUM BUTYRICUM SPORES STRAIN M-55
     Indication: CONSTIPATION
     Dosage: 0.8 G, UNK
     Route: 048
     Dates: start: 20180403, end: 20180417
  46. MIYA-BM [Concomitant]
     Active Substance: CLOSTRIDIUM BUTYRICUM SPORES STRAIN M-55
     Indication: PROPHYLAXIS
     Dosage: 0.8 G, UNK
     Route: 048
     Dates: start: 20180620, end: 20180624
  47. DIAPP [Concomitant]
     Active Substance: DIAZEPAM
     Indication: SEIZURE
     Dosage: 1 DF, PRN
     Route: 054
     Dates: start: 20180822
  48. DIAPP [Concomitant]
     Active Substance: DIAZEPAM
     Indication: CHRONIC INFANTILE NEUROLOGICAL CUTANEOUS AND ARTICULAR SYNDROME
  49. ILARIS [Suspect]
     Active Substance: CANAKINUMAB
     Dosage: 16.5 MG, UNK
     Route: 058
     Dates: start: 20161213, end: 20161213
  50. ILARIS [Suspect]
     Active Substance: CANAKINUMAB
     Dosage: 31.5 MG, UNK
     Route: 058
     Dates: start: 20170404
  51. ILARIS [Suspect]
     Active Substance: CANAKINUMAB
     Dosage: 46.5 MG, UNK
     Route: 058
     Dates: start: 20170530
  52. ILARIS [Suspect]
     Active Substance: CANAKINUMAB
     Dosage: 63 MG, UNK
     Route: 058
     Dates: start: 20170919
  53. ILARIS [Suspect]
     Active Substance: CANAKINUMAB
     Dosage: 64 MG, UNK
     Route: 058
     Dates: start: 20180731
  54. ILARIS [Suspect]
     Active Substance: CANAKINUMAB
     Dosage: UNK
     Route: 065
  55. MEIACT [Suspect]
     Active Substance: CEFDITOREN PIVOXIL
     Indication: PROPHYLAXIS
     Dosage: 0.8 G, UNK
     Route: 048
     Dates: start: 20180605, end: 20180609
  56. LAC-B [Suspect]
     Active Substance: BIFIDOBACTERIUM SPP.
     Indication: PROPHYLAXIS AGAINST DIARRHOEA
     Dosage: 0.8 G, UNK
     Route: 048
     Dates: start: 20170223, end: 20170304
  57. LAC-B [Suspect]
     Active Substance: BIFIDOBACTERIUM SPP.
     Indication: CONSTIPATION
     Dosage: 0.7 G, UNK
     Route: 048
     Dates: start: 20170822, end: 20170829
  58. PHENOBAL [Concomitant]
     Active Substance: PHENOBARBITAL
     Dosage: 45 MG, UNK
     Route: 048
     Dates: start: 20170530, end: 20180702
  59. BAKTAR [Concomitant]
     Active Substance: SULFAMETHOXAZOLE\TRIMETHOPRIM
     Indication: PROPHYLAXIS
     Dosage: 0.5 G, UNK
     Route: 048
     Dates: start: 20170314, end: 20180702
  60. CEFOTAXIME [Concomitant]
     Active Substance: CEFOTAXIME SODIUM
     Dosage: 300 MG, TID
     Route: 042
     Dates: start: 20181020, end: 20181023
  61. CEFOTAXIME [Concomitant]
     Active Substance: CEFOTAXIME SODIUM
     Dosage: 400 MG, TID
     Route: 042
     Dates: start: 20190222, end: 20190226
  62. CEFOTAXIME [Concomitant]
     Active Substance: CEFOTAXIME SODIUM
     Dosage: 400 MG, TID
     Route: 042
     Dates: start: 20190430, end: 20190506
  63. CEFOTAXIME [Concomitant]
     Active Substance: CEFOTAXIME SODIUM
     Dosage: 400 MG, TID
     Route: 042
     Dates: start: 20190721, end: 20190725
  64. E KEPPRA [Concomitant]
     Active Substance: LEVETIRACETAM
     Dosage: 100 MG, UNK
     Route: 048
     Dates: start: 20180320, end: 20180416
  65. MIYA-BM [Concomitant]
     Active Substance: CLOSTRIDIUM BUTYRICUM SPORES STRAIN M-55
     Dosage: 1.1 G
     Route: 048
     Dates: start: 20190418, end: 20190424

REACTIONS (49)
  - Hyperthermia [Unknown]
  - Gastroenteritis [Recovered/Resolved]
  - Ileus paralytic [Unknown]
  - White blood cell count increased [Unknown]
  - C-reactive protein increased [Not Recovered/Not Resolved]
  - Vomiting [Unknown]
  - Gastroenteritis adenovirus [Recovered/Resolved]
  - Productive cough [Unknown]
  - Pneumonia aspiration [Recovered/Resolved]
  - Pneumonia aspiration [Recovered/Resolved]
  - Cryopyrin associated periodic syndrome [Recovered/Resolved]
  - Condition aggravated [Recovered/Resolved]
  - Muscle spasms [Recovering/Resolving]
  - Constipation [Recovering/Resolving]
  - Carnitine deficiency [Recovered/Resolved]
  - Occult blood positive [Recovered/Resolved]
  - Pneumonia aspiration [Recovered/Resolved]
  - Pneumonia aspiration [Recovered/Resolved]
  - Cough [Unknown]
  - Gastrointestinal haemorrhage [Unknown]
  - Asthma [Recovered/Resolved]
  - Papilloedema [Recovered/Resolved with Sequelae]
  - Road traffic accident [Recovered/Resolved]
  - Breath sounds abnormal [Unknown]
  - Pharyngeal erythema [Unknown]
  - Mucosal erosion [Unknown]
  - Cerebral atrophy [Unknown]
  - Coating in mouth [Unknown]
  - Rhinorrhoea [Recovering/Resolving]
  - Benign enlargement of the subarachnoid spaces [Unknown]
  - Laryngitis [Unknown]
  - Muscle tightness [Recovering/Resolving]
  - Gastroenteritis [Recovered/Resolved]
  - Laryngitis [Recovered/Resolved]
  - Aspiration [Recovered/Resolved]
  - Cough [Recovering/Resolving]
  - White blood cell count increased [Recovered/Resolved]
  - Decreased appetite [Recovering/Resolving]
  - Pyrexia [Recovering/Resolving]
  - Pneumonia [Recovered/Resolved]
  - Pyrexia [Unknown]
  - Subdural hygroma [Unknown]
  - Oral candidiasis [Recovering/Resolving]
  - Nasopharyngitis [Recovered/Resolved]
  - Bronchitis [Recovering/Resolving]
  - Pneumonia aspiration [Recovered/Resolved]
  - Aspiration [Not Recovered/Not Resolved]
  - Product use issue [Not Recovered/Not Resolved]
  - Hypotonia [Unknown]

NARRATIVE: CASE EVENT DATE: 20160823
